FAERS Safety Report 24270831 (Version 6)
Quarter: 2024Q4

REPORT INFORMATION
  Report Type: Report from Study
  Country: JP (occurrence: JP)
  Receive Date: 20240831
  Receipt Date: 20241127
  Transmission Date: 20250114
  Serious: Yes (Hospitalization)
  Sender: ABBVIE
  Company Number: JP-GSKJP-JP2024JPN102173

PATIENT
  Age: 64 Year
  Sex: Male
  Weight: 92.7 kg

DRUGS (10)
  1. BOTULINUM TOXIN TYPE A [Suspect]
     Active Substance: BOTULINUM TOXIN TYPE A
     Indication: Muscle spasms
     Dosage: TIME INTERVAL: AS NECESSARY: 500 IU
     Route: 030
     Dates: start: 20231201, end: 20231201
  2. BOTULINUM TOXIN TYPE A [Suspect]
     Active Substance: BOTULINUM TOXIN TYPE A
     Indication: Muscle spasms
     Dosage: TIME INTERVAL: AS NECESSARY: 500 IU
     Route: 030
     Dates: start: 20240524, end: 20240524
  3. BOTULINUM TOXIN TYPE A [Suspect]
     Active Substance: BOTULINUM TOXIN TYPE A
     Indication: Muscle spasms
     Dosage: TIME INTERVAL: AS NECESSARY: TOTAL NUMBER OF DOSES: 21 OR MORE
     Route: 065
     Dates: start: 20120705, end: 20120705
  4. BOTULINUM TOXIN TYPE A [Suspect]
     Active Substance: BOTULINUM TOXIN TYPE A
     Indication: Muscle spasms
     Dosage: TIME INTERVAL: AS NECESSARY: 500 IU
     Route: 030
     Dates: start: 20230908, end: 20230908
  5. BOTULINUM TOXIN TYPE A [Suspect]
     Active Substance: BOTULINUM TOXIN TYPE A
     Indication: Muscle spasms
     Dosage: TIME INTERVAL: AS NECESSARY: 400 IU
     Route: 065
     Dates: start: 20230609, end: 20230609
  6. BOTULINUM TOXIN TYPE A [Suspect]
     Active Substance: BOTULINUM TOXIN TYPE A
     Indication: Muscle spasms
     Dosage: TIME INTERVAL: AS NECESSARY: 500 IU
     Route: 030
     Dates: start: 20240301, end: 20240301
  7. TAMSULOSIN HYDROCHLORIDE [Concomitant]
     Active Substance: TAMSULOSIN HYDROCHLORIDE
     Indication: Product used for unknown indication
     Dosage: UNK
  8. PREGABALIN [Concomitant]
     Active Substance: PREGABALIN
     Indication: Product used for unknown indication
     Dosage: UNK
  9. AMLODIPINE BESYLATE [Concomitant]
     Active Substance: AMLODIPINE BESYLATE
     Indication: Product used for unknown indication
     Dosage: UNK
  10. VIBEGRON [Concomitant]
     Active Substance: VIBEGRON
     Indication: Product used for unknown indication
     Dosage: UNK

REACTIONS (1)
  - Spinal column injury [Recovered/Resolved with Sequelae]

NARRATIVE: CASE EVENT DATE: 20240801
